FAERS Safety Report 9399884 (Version 1)
Quarter: 2013Q3

REPORT INFORMATION
  Report Type: Spontaneous
  Country: US (occurrence: US)
  Receive Date: 20130715
  Receipt Date: 20130715
  Transmission Date: 20140515
  Serious: No
  Sender: FDA-Public Use
  Company Number: US-009507513-1307USA000284

PATIENT
  Age: 76 Year
  Sex: Female

DRUGS (3)
  1. DULERA [Suspect]
     Indication: CHRONIC OBSTRUCTIVE PULMONARY DISEASE
     Dosage: 2 DF, BID, 1 STANDARD DOSE OF 13
     Route: 048
     Dates: start: 2011
  2. DULERA [Suspect]
     Dosage: 1 DF, BID, 1 STANDARD DOSE OF 13
     Route: 048
  3. BENICAR [Concomitant]
     Dosage: UNK

REACTIONS (2)
  - Dysgeusia [Not Recovered/Not Resolved]
  - Product quality issue [Unknown]
